FAERS Safety Report 19474253 (Version 1)
Quarter: 2021Q2

REPORT INFORMATION
  Report Type: Spontaneous
  Country: NL (occurrence: NL)
  Receive Date: 20210630
  Receipt Date: 20210630
  Transmission Date: 20210717
  Serious: Yes (Other)
  Sender: FDA-Public Use
  Company Number: NL-JNJFOC-20210654029

PATIENT
  Sex: Female

DRUGS (12)
  1. ACENOCOUMAROL [Concomitant]
     Active Substance: ACENOCOUMAROL
     Indication: PRODUCT USED FOR UNKNOWN INDICATION
     Route: 065
     Dates: start: 1996
  2. FOLIUMZUUR [Concomitant]
     Active Substance: FOLIC ACID
     Indication: PRODUCT USED FOR UNKNOWN INDICATION
     Route: 065
     Dates: start: 1983
  3. COVID?19 VACCINE NOS. [Suspect]
     Active Substance: COVID-19 VACCINE NOS
     Indication: COVID-19 IMMUNISATION
     Route: 065
     Dates: start: 20210511
  4. AMYLASE/LIPASE/PROTEASE [Concomitant]
     Active Substance: PANCRELIPASE AMYLASE\PANCRELIPASE LIPASE\PANCRELIPASE PROTEASE
     Indication: PRODUCT USED FOR UNKNOWN INDICATION
     Route: 065
     Dates: start: 2009
  5. HYDROCORTISONE. [Suspect]
     Active Substance: HYDROCORTISONE
     Indication: CROHN^S DISEASE
     Route: 065
     Dates: start: 20210609
  6. URSODEOXYCHOLZUUR [Concomitant]
     Indication: PRODUCT USED FOR UNKNOWN INDICATION
     Route: 065
     Dates: start: 1983
  7. LACOSAMIDE. [Concomitant]
     Active Substance: LACOSAMIDE
     Indication: PRODUCT USED FOR UNKNOWN INDICATION
     Route: 065
     Dates: start: 2016
  8. REMICADE [Suspect]
     Active Substance: INFLIXIMAB
     Indication: CHOLANGITIS SCLEROSING
  9. REMICADE [Suspect]
     Active Substance: INFLIXIMAB
     Indication: CROHN^S DISEASE
     Route: 042
     Dates: start: 20210609
  10. FAMOTIDINE. [Concomitant]
     Active Substance: FAMOTIDINE
     Indication: PRODUCT USED FOR UNKNOWN INDICATION
     Route: 065
     Dates: start: 1990
  11. HYDROCORTISONE. [Suspect]
     Active Substance: HYDROCORTISONE
     Indication: CHOLANGITIS SCLEROSING
     Route: 065
  12. LISINOPRIL. [Concomitant]
     Active Substance: LISINOPRIL
     Indication: PRODUCT USED FOR UNKNOWN INDICATION
     Route: 065
     Dates: start: 2016

REACTIONS (3)
  - Blood sodium decreased [Unknown]
  - Malaise [Unknown]
  - Diabetes mellitus inadequate control [Unknown]
